FAERS Safety Report 12994912 (Version 2)
Quarter: 2017Q1

REPORT INFORMATION
  Report Type: Report from Study
  Country: US (occurrence: US)
  Receive Date: 20161202
  Receipt Date: 20170322
  Transmission Date: 20170428
  Serious: Yes (Hospitalization, Other)
  Sender: FDA-Public Use
  Company Number: US-CELGENEUS-USA-2016118396

PATIENT
  Age: 60 Year

DRUGS (11)
  1. XARELTO [Concomitant]
     Active Substance: RIVAROXABAN
     Indication: ATRIAL FIBRILLATION
     Dosage: 30 MILLIGRAM
     Route: 048
     Dates: start: 20160108
  2. REVLIMID [Suspect]
     Active Substance: LENALIDOMIDE
     Indication: PLASMA CELL MYELOMA
     Dosage: 15MG
     Route: 048
     Dates: start: 20130622, end: 20140608
  3. REVLIMID [Suspect]
     Active Substance: LENALIDOMIDE
     Dosage: 15MG
     Route: 048
     Dates: start: 20140609, end: 20150317
  4. CYCLOPHOSPHAMIDE. [Suspect]
     Active Substance: CYCLOPHOSPHAMIDE
     Indication: PLASMA CELL MYELOMA
     Dosage: 680MG
     Route: 041
     Dates: start: 20160108, end: 20160113
  5. CISPLATIN. [Suspect]
     Active Substance: CISPLATIN
     Indication: PLASMA CELL MYELOMA
     Dosage: 20
     Route: 041
     Dates: start: 20160108, end: 20160113
  6. ETOPOSIDE. [Suspect]
     Active Substance: ETOPOSIDE
     Indication: PLASMA CELL MYELOMA
     Dosage: 68MG
     Route: 041
     Dates: start: 20160108, end: 20160113
  7. REVLIMID [Suspect]
     Active Substance: LENALIDOMIDE
     Dosage: 25MG
     Route: 048
     Dates: start: 20150318, end: 20160107
  8. CISPLATIN. [Suspect]
     Active Substance: CISPLATIN
     Dosage: 20
     Route: 041
     Dates: start: 20160108, end: 20160108
  9. ALLOPURINOL. [Concomitant]
     Active Substance: ALLOPURINOL
     Indication: PROPHYLAXIS
     Dosage: 300 MILLIGRAM
     Route: 048
     Dates: start: 20160115
  10. ETOPOSIDE. [Suspect]
     Active Substance: ETOPOSIDE
     Dosage: 68MG
     Route: 041
     Dates: start: 20160108, end: 20160108
  11. VALACYCLOVIR [Concomitant]
     Active Substance: VALACYCLOVIR HYDROCHLORIDE
     Indication: ANTIVIRAL TREATMENT
     Dosage: 500 MILLIGRAM
     Route: 048
     Dates: start: 20130710

REACTIONS (1)
  - Pneumonia [Recovered/Resolved]

NARRATIVE: CASE EVENT DATE: 20160115
